FAERS Safety Report 15956867 (Version 1)
Quarter: 2019Q1

REPORT INFORMATION
  Report Type: Spontaneous
  Country: US (occurrence: US)
  Receive Date: 20190213
  Receipt Date: 20190213
  Transmission Date: 20190417
  Serious: Yes (Other)
  Sender: FDA-Public Use
  Company Number: US-GLAXOSMITHKLINE-US2019023071

PATIENT
  Age: 73 Year
  Sex: Female

DRUGS (1)
  1. ADVAIR DISKUS [Suspect]
     Active Substance: FLUTICASONE PROPIONATE\SALMETEROL XINAFOATE
     Indication: ASTHMA
     Dosage: 1 PUFF(S), QD
     Route: 055
     Dates: start: 20190204

REACTIONS (6)
  - Expired product administered [Unknown]
  - Product use issue [Unknown]
  - Cough [Unknown]
  - Dry throat [Unknown]
  - Pulmonary congestion [Unknown]
  - Underdose [Unknown]

NARRATIVE: CASE EVENT DATE: 20190204
